FAERS Safety Report 8127864-2 (Version None)
Quarter: 2012Q1

REPORT INFORMATION
  Report Type: 
  Country: None (occurrence: None)
  Receive Date: 20120210
  Receipt Date: 20110915
  Transmission Date: 20120608
  Serious: No
  Sender: FDA-Public Use
  Company Number: US-GLAXOSMITHKLINE-A0945641A

PATIENT
  Sex: Male

DRUGS (2)
  1. LEXAPRO [Suspect]
     Indication: GENERALISED ANXIETY DISORDER
     Route: 065
     Dates: start: 20080101
  2. PAXIL [Suspect]
     Indication: GENERALISED ANXIETY DISORDER
     Dosage: 40MG PER DAY
     Route: 065
     Dates: start: 20080101

REACTIONS (9)
  - LOSS OF LIBIDO [None]
  - POST-TRAUMATIC STRESS DISORDER [None]
  - ATTENTION DEFICIT/HYPERACTIVITY DISORDER [None]
  - SOMNOLENCE [None]
  - ABDOMINAL PAIN UPPER [None]
  - HYPERHIDROSIS [None]
  - LIBIDO DECREASED [None]
  - MIDDLE INSOMNIA [None]
  - NIGHT SWEATS [None]
